FAERS Safety Report 18424472 (Version 1)
Quarter: 2020Q4

REPORT INFORMATION
  Report Type: Spontaneous
  Country: IT (occurrence: IT)
  Receive Date: 20201026
  Receipt Date: 20201026
  Transmission Date: 20210114
  Serious: Yes (Other)
  Sender: FDA-Public Use
  Company Number: IT-SUN PHARMACEUTICAL INDUSTRIES LTD-2020RR-265166

PATIENT
  Age: 72 Year
  Sex: Male

DRUGS (8)
  1. RAMIPRIL. [Concomitant]
     Active Substance: RAMIPRIL
     Dosage: 5 MILLIGRAMS, UNK
     Route: 048
  2. SIVASTIN 20 MG COMPRESSE RIVESTITE CON FILM [Concomitant]
     Active Substance: SIMVASTATIN
     Indication: HYPERCHOLESTEROLAEMIA
     Dosage: 20 MILLIGRAMS, UNK
     Route: 048
  3. ALMARYTM 100 MG COMPRESSE [Concomitant]
     Active Substance: FLECAINIDE ACETATE
     Dosage: 1 DOSAGE FORM, UNK
     Route: 048
  4. SERTRALINE [Suspect]
     Active Substance: SERTRALINE HYDROCHLORIDE
     Indication: MAJOR DEPRESSION
     Dosage: 50 MILLIGRAM, DAILY
     Route: 048
  5. PRADAXA [Suspect]
     Active Substance: DABIGATRAN ETEXILATE MESYLATE
     Indication: ATRIAL FIBRILLATION
     Dosage: 2 DOSAGE FORM, DAILY
     Route: 048
     Dates: start: 20200308
  6. SIVASTIN 20 MG COMPRESSE RIVESTITE CON FILM [Concomitant]
     Active Substance: SIMVASTATIN
     Dosage: 20 MILLIGRAMS, UNK
     Route: 048
  7. ALMARYTM 100 MG COMPRESSE [Concomitant]
     Active Substance: FLECAINIDE ACETATE
     Indication: ATRIAL FIBRILLATION
     Dosage: 1 DOSAGE FORM, UNK
     Route: 048
  8. RAMIPRIL. [Concomitant]
     Active Substance: RAMIPRIL
     Indication: HYPERTENSION
     Dosage: 5 MILLIGRAMS, UNK
     Route: 048

REACTIONS (2)
  - Traumatic haematoma [Recovering/Resolving]
  - Joint lock [Recovering/Resolving]

NARRATIVE: CASE EVENT DATE: 20200815
